FAERS Safety Report 8392595-0 (Version None)
Quarter: 2012Q2

REPORT INFORMATION
  Report Type: 
  Country: None (occurrence: None)
  Receive Date: 20120529
  Receipt Date: 20120523
  Transmission Date: 20120825
  Serious: Yes (Other)
  Sender: FDA-Public Use
  Company Number: US-PURDUE-USA-2012-0082975

PATIENT
  Sex: Female
  Weight: 70.295 kg

DRUGS (12)
  1. PRISTIQ [Suspect]
     Indication: PAIN
  2. DILAUDID [Suspect]
     Indication: PAIN
     Dosage: 4 MG, UNK
     Route: 048
  3. HIPREX [Concomitant]
     Indication: PRODUCT USED FOR UNKNOWN INDICATION
     Dosage: 2 GRAM, DAILY
  4. LYRICA [Concomitant]
     Indication: PRODUCT USED FOR UNKNOWN INDICATION
     Dosage: 50 MG, DAILY
  5. PRISTIQ [Suspect]
     Indication: FIBROMYALGIA
     Dosage: 50 MG, DAILY
  6. NORCO [Concomitant]
     Indication: PAIN
     Dosage: 10/325 1-2 EVERY 4-6 HOURS
  7. LEVOXYL [Concomitant]
     Indication: PRODUCT USED FOR UNKNOWN INDICATION
     Dosage: 88 MCG, DAILY
  8. CRESTOR [Concomitant]
     Indication: PRODUCT USED FOR UNKNOWN INDICATION
     Dosage: UNK, DAILY
  9. PANTOPRAZOLE [Concomitant]
     Indication: PRODUCT USED FOR UNKNOWN INDICATION
     Dosage: 80 MG, DAILY
  10. OXYBUTYNIN [Concomitant]
     Indication: PRODUCT USED FOR UNKNOWN INDICATION
     Dosage: UNK, DAILY
  11. BUTRANS [Suspect]
     Indication: PAIN
     Dosage: 10 MCG/HR, UNK
     Route: 062
     Dates: start: 20120301, end: 20120301
  12. MIDODRINE HYDROCHLORIDE [Concomitant]
     Indication: PRODUCT USED FOR UNKNOWN INDICATION
     Dosage: 20 MG, DAILY

REACTIONS (9)
  - DELIRIUM [None]
  - CONFUSIONAL STATE [None]
  - FEELING ABNORMAL [None]
  - SOMNOLENCE [None]
  - DIZZINESS [None]
  - SYNCOPE [None]
  - INCOHERENT [None]
  - PAIN [None]
  - INADEQUATE ANALGESIA [None]
